FAERS Safety Report 5333123-3 (Version None)
Quarter: 2007Q2

REPORT INFORMATION
  Report Type: 
  Country: None (occurrence: None)
  Receive Date: 20070521
  Receipt Date: 20070521
  Transmission Date: 20071010
  Serious: Yes (Life-Threatening, Disabling, Other)
  Sender: FDA-Public Use
  Company Number: None

PATIENT
  Age: 47 Year
  Sex: Male
  Weight: 81.6475 kg

DRUGS (1)
  1. BACTRIM DS [Suspect]
     Indication: PROSTATITIS
     Dosage: 2 TABLETS DAILY PO
     Route: 048
     Dates: start: 20070315, end: 20070410

REACTIONS (6)
  - AGEUSIA [None]
  - COUGH [None]
  - DRUG HYPERSENSITIVITY [None]
  - SENSORY LOSS [None]
  - SEXUAL DYSFUNCTION [None]
  - STEVENS-JOHNSON SYNDROME [None]
